FAERS Safety Report 4336415-X (Version None)
Quarter: 2004Q2

REPORT INFORMATION
  Report Type: 
  Country: None (occurrence: None)
  Receive Date: 20040407
  Receipt Date: 20040324
  Transmission Date: 20050107
  Serious: Yes (Death)
  Sender: FDA-Public Use
  Company Number: 02100-USA-04-0140

PATIENT
  Sex: Male

DRUGS (15)
  1. PLETAL [Suspect]
     Indication: INTERMITTENT CLAUDICATION
     Dosage: 100 MG BID ORAL
     Route: 048
     Dates: start: 20020305, end: 20031218
  2. PLETAL [Suspect]
     Indication: INTERMITTENT CLAUDICATION
     Dosage: 50 MG BID ORAL
     Route: 048
     Dates: start: 20020305, end: 20031218
  3. PLETAL [Suspect]
     Indication: INTERMITTENT CLAUDICATION
     Dosage: 100 MG BID ORAL
     Route: 048
     Dates: start: 20040119
  4. PLETAL [Suspect]
     Indication: INTERMITTENT CLAUDICATION
     Dosage: 50 MG BID ORAL
     Route: 048
     Dates: start: 20040119
  5. PLACEBO [Suspect]
     Indication: INTERMITTENT CLAUDICATION
     Dosage: 2 DF BID ORAL
     Route: 048
     Dates: start: 20020305, end: 20031218
  6. PLACEBO [Suspect]
     Indication: INTERMITTENT CLAUDICATION
     Dosage: 1 DF BID ORAL
     Route: 048
     Dates: start: 20020305, end: 20030318
  7. PLACEBO [Suspect]
     Indication: INTERMITTENT CLAUDICATION
     Dosage: 2 DF BID ORAL
     Route: 048
     Dates: start: 20040109
  8. PLACEBO [Suspect]
     Indication: INTERMITTENT CLAUDICATION
     Dosage: 1 DF BID ORAL
     Route: 048
     Dates: start: 20040109
  9. ALBUTEROL [Concomitant]
  10. DIGOXIN [Concomitant]
  11. DILTIAZEM [Concomitant]
  12. LOVASTATIN [Concomitant]
  13. METOPROLOL [Concomitant]
  14. FUROSEMIDE [Concomitant]
  15. TERAZOSIN HYDROCHLORIDE [Concomitant]

REACTIONS (1)
  - DEATH [None]
